FAERS Safety Report 9401005 (Version 1)
Quarter: 2013Q3

REPORT INFORMATION
  Report Type: Report from Study
  Country: JP (occurrence: JP)
  Receive Date: 20130715
  Receipt Date: 20130715
  Transmission Date: 20140515
  Serious: Yes (Death, Life-Threatening)
  Sender: FDA-Public Use
  Company Number: JP-GLAXOSMITHKLINE-B0614871A

PATIENT
  Age: 62 Year
  Sex: Male

DRUGS (18)
  1. SERETIDE (50MCG/250MCG) [Suspect]
     Indication: CHRONIC OBSTRUCTIVE PULMONARY DISEASE
     Dosage: 250MCG TWICE PER DAY
     Route: 055
     Dates: start: 20091008, end: 20100129
  2. UNIPHYL LA [Concomitant]
     Route: 048
     Dates: start: 20060105, end: 20100129
  3. SPIRIVA [Concomitant]
     Route: 055
     Dates: start: 20050330, end: 20100129
  4. DIOVAN [Concomitant]
     Route: 048
     Dates: start: 20070712, end: 20100129
  5. CLARITH [Concomitant]
     Indication: CHRONIC SINUSITIS
     Route: 048
     Dates: start: 20060810, end: 20100129
  6. HALFDIGOXIN [Concomitant]
     Indication: ARRHYTHMIA
     Route: 048
     Dates: start: 20090430, end: 20100129
  7. PAZUCROSS [Concomitant]
     Route: 042
     Dates: start: 20100110, end: 20100121
  8. BFLUID [Concomitant]
     Route: 042
     Dates: start: 20100110, end: 20100116
  9. BFLUID [Concomitant]
     Route: 042
     Dates: start: 20100122, end: 20100129
  10. NEOPHYLLIN [Concomitant]
     Route: 042
     Dates: start: 20100114, end: 20100116
  11. NEOPHYLLIN [Concomitant]
     Route: 042
     Dates: start: 20100119, end: 20100129
  12. DECADRON [Concomitant]
     Dates: start: 20100114, end: 20100116
  13. DECADRON [Concomitant]
     Dates: start: 20100119, end: 20100121
  14. VEEN-3G [Concomitant]
     Route: 042
     Dates: start: 20100114, end: 20100116
  15. VEEN-3G [Concomitant]
     Route: 042
     Dates: start: 20100122, end: 20100129
  16. FAMOTIDINE [Concomitant]
     Route: 042
     Dates: start: 20100114, end: 20100118
  17. SEISHOKU [Concomitant]
     Dates: start: 20100114, end: 20100118
  18. ACTIT [Concomitant]
     Route: 042
     Dates: start: 20100119, end: 20100121

REACTIONS (2)
  - Pneumonia bacterial [Recovering/Resolving]
  - Pneumonia aspiration [Fatal]
